FAERS Safety Report 18312992 (Version 1)
Quarter: 2020Q3

REPORT INFORMATION
  Report Type: Spontaneous
  Country: US (occurrence: US)
  Receive Date: 20200925
  Receipt Date: 20200925
  Transmission Date: 20201103
  Serious: Yes (Other)
  Sender: FDA-Public Use
  Company Number: None

PATIENT
  Age: 73 Year
  Sex: Female
  Weight: 47.7 kg

DRUGS (15)
  1. CAPECITABINE. [Suspect]
     Active Substance: CAPECITABINE
     Indication: BREAST CANCER
     Route: 048
     Dates: start: 20200813
  2. FOSAMAX [Concomitant]
     Active Substance: ALENDRONATE SODIUM
  3. LATANOPROST. [Concomitant]
     Active Substance: LATANOPROST
  4. SIMVASTATIN. [Concomitant]
     Active Substance: SIMVASTATIN
  5. SULFACETAMIDE SODIUM ? SULF WASH [Concomitant]
  6. CALCIUM 600MG [Concomitant]
  7. DORZOLAMIDE?TIMOLOL [Concomitant]
     Active Substance: DORZOLAMIDE\TIMOLOL
  8. ASPIRIN LOW DOSE [Concomitant]
     Active Substance: ASPIRIN
  9. GABAPENTIN. [Concomitant]
     Active Substance: GABAPENTIN
  10. MULTIVITAMIN [Concomitant]
     Active Substance: VITAMINS
  11. OLANZAPINE. [Concomitant]
     Active Substance: OLANZAPINE
  12. VITAMIN D [Concomitant]
     Active Substance: VITAMIN D NOS
  13. HYDROCHLOROTHIAZIDE. [Concomitant]
     Active Substance: HYDROCHLOROTHIAZIDE
  14. PROCHLORPERAZINE. [Concomitant]
     Active Substance: PROCHLORPERAZINE
  15. LORATADINE. [Concomitant]
     Active Substance: LORATADINE

REACTIONS (6)
  - Neuropathy peripheral [None]
  - Skin disorder [None]
  - Eye pruritus [None]
  - Dry eye [None]
  - Eye irritation [None]
  - Rash pruritic [None]

NARRATIVE: CASE EVENT DATE: 20200925
